FAERS Safety Report 5891395-0 (Version None)
Quarter: 2008Q3

REPORT INFORMATION
  Report Type: 
  Country: None (occurrence: None)
  Receive Date: 20080918
  Receipt Date: 20080918
  Transmission Date: 20090109
  Serious: Yes (Other)
  Sender: FDA-Public Use
  Company Number: None

PATIENT
  Sex: Female

DRUGS (1)
  1. LYRICA [Suspect]

REACTIONS (14)
  - ASTHENIA [None]
  - CONTUSION [None]
  - COORDINATION ABNORMAL [None]
  - DISORIENTATION [None]
  - DYSARTHRIA [None]
  - EXCORIATION [None]
  - FACE INJURY [None]
  - HYPOPHAGIA [None]
  - INFLUENZA LIKE ILLNESS [None]
  - MALAISE [None]
  - MYALGIA [None]
  - NAUSEA [None]
  - ORAL PAIN [None]
  - VISION BLURRED [None]
